FAERS Safety Report 21279394 (Version 1)
Quarter: 2022Q3

REPORT INFORMATION
  Report Type: Spontaneous
  Country: DE (occurrence: DE)
  Receive Date: 20220901
  Receipt Date: 20220901
  Transmission Date: 20221027
  Serious: Yes (Death)
  Sender: FDA-Public Use
  Company Number: DE-DCGMA-22195448

PATIENT
  Age: 67 Year
  Sex: Female

DRUGS (1)
  1. TRIMIPRAMINE [Suspect]
     Active Substance: TRIMIPRAMINE
     Indication: Depression
     Dosage: UNIT DOSE : 25 MG
     Route: 065

REACTIONS (1)
  - Completed suicide [Fatal]

NARRATIVE: CASE EVENT DATE: 20211028
